FAERS Safety Report 8969412 (Version 1)
Quarter: 2012Q4

REPORT INFORMATION
  Report Type: 
  Country: US (occurrence: US)
  Receive Date: 20121218
  Receipt Date: 20121218
  Transmission Date: 20130627
  Serious: Yes (Other)
  Sender: FDA-Public Use
  Company Number: US-BRISTOL-MYERS SQUIBB COMPANY-16646945

PATIENT
  Age: 28 Year
  Sex: Male
  Weight: 63 kg

DRUGS (1)
  1. ABILIFY [Suspect]
     Indication: SCHIZOPHRENIA
     Dosage: also taken 30mg
Dosage: 30mg 30 tab.
NDC#59148-011-13
Expiration date:5/17/2013

REACTIONS (2)
  - Swollen tongue [Recovered/Resolved]
  - Throat tightness [Recovered/Resolved]
